FAERS Safety Report 24346052 (Version 1)
Quarter: 2024Q3

REPORT INFORMATION
  Report Type: Report from Study
  Country: TR (occurrence: TR)
  Receive Date: 20240921
  Receipt Date: 20240921
  Transmission Date: 20241016
  Serious: Yes (Death, Hospitalization, Other)
  Sender: ABBVIE
  Company Number: TR-ABBVIE-5906861

PATIENT
  Age: 69 Year
  Sex: Male

DRUGS (2)
  1. CARBIDOPA\LEVODOPA [Suspect]
     Active Substance: CARBIDOPA\LEVODOPA
     Indication: Parkinson^s disease
     Dosage: MORNING DOSE (ML): 6.60 CONTINUOUS DOSE (ML): 3.50 EXTRA DOSE (ML): 1.00
     Route: 050
     Dates: start: 20230501
  2. CARBIDOPA\LEVODOPA [Suspect]
     Active Substance: CARBIDOPA\LEVODOPA

REACTIONS (2)
  - General physical health deterioration [Fatal]
  - Ileus [Recovered/Resolved]

NARRATIVE: CASE EVENT DATE: 20240902
